FAERS Safety Report 12609938 (Version 2)
Quarter: 2021Q4

REPORT INFORMATION
  Report Type: Spontaneous
  Country: CA (occurrence: CA)
  Receive Date: 20160801
  Receipt Date: 20211216
  Transmission Date: 20220303
  Serious: Yes (Life-Threatening, Hospitalization, Other)
  Sender: FDA-Public Use
  Company Number: None

PATIENT
  Age: 39 Year
  Sex: Male

DRUGS (6)
  1. OLANZAPINE [Interacting]
     Active Substance: OLANZAPINE
     Indication: Product used for unknown indication
     Dosage: UNK UNK,QD,
     Route: 065
  2. ESCITALOPRAM [Suspect]
     Active Substance: ESCITALOPRAM OXALATE
     Indication: Product used for unknown indication
     Dosage: UNK UNK,QD,
     Route: 065
  3. QUETIAPINE FUMARATE [Interacting]
     Active Substance: QUETIAPINE FUMARATE
     Indication: Product used for unknown indication
     Dosage: UNK UNK,QD,
     Route: 065
  4. BUPROPION [Interacting]
     Active Substance: BUPROPION
     Indication: Product used for unknown indication
     Dosage: UNK UNK,QD,
     Route: 065
  5. PHENYTOIN [Interacting]
     Active Substance: PHENYTOIN
     Indication: Product used for unknown indication
     Dosage: UNK UNK,QD,
     Route: 065
  6. PRIMIDONE [Interacting]
     Active Substance: PRIMIDONE
     Indication: Product used for unknown indication
     Dosage: UNK UNK,QD,
     Route: 065

REACTIONS (4)
  - Serotonin syndrome [Recovered/Resolved]
  - Overdose [Unknown]
  - Drug interaction [Unknown]
  - Toxicity to various agents [Unknown]
